FAERS Safety Report 19991505 (Version 1)
Quarter: 2021Q4

REPORT INFORMATION
  Report Type: Spontaneous
  Country: CN (occurrence: CN)
  Receive Date: 20211025
  Receipt Date: 20211025
  Transmission Date: 20220303
  Serious: Yes (Other)
  Sender: FDA-Public Use
  Company Number: CN-ROCHE-2942769

PATIENT
  Age: 60 Year
  Sex: Male
  Weight: 64 kg

DRUGS (19)
  1. AVASTIN [Suspect]
     Active Substance: BEVACIZUMAB
     Indication: Rectal adenocarcinoma
     Dosage: FOR 5 CYCLES
     Route: 065
     Dates: start: 201703, end: 201706
  2. AVASTIN [Suspect]
     Active Substance: BEVACIZUMAB
     Dosage: FOR THE FIRST CYCLE
     Route: 065
     Dates: start: 20171014
  3. AVASTIN [Suspect]
     Active Substance: BEVACIZUMAB
     Dosage: FOR 7 CYCLES
     Route: 065
     Dates: start: 201802, end: 201810
  4. AVASTIN [Suspect]
     Active Substance: BEVACIZUMAB
     Dosage: FOR 7 CYCLES, FOR 7 CYCLES
     Route: 065
     Dates: start: 201810, end: 201906
  5. AVASTIN [Suspect]
     Active Substance: BEVACIZUMAB
     Dosage: FOR 3 CYCLES
     Route: 065
     Dates: start: 201906
  6. XELODA [Suspect]
     Active Substance: CAPECITABINE
     Indication: Rectal adenocarcinoma
     Dosage: FOR 5 CYCLES
     Route: 048
     Dates: start: 201703, end: 201706
  7. XELODA [Suspect]
     Active Substance: CAPECITABINE
     Dosage: FOR 7 CYCLES, FOR 2 CYCLES
     Route: 048
     Dates: start: 201802, end: 201810
  8. XELODA [Suspect]
     Active Substance: CAPECITABINE
     Dosage: FOR 7 CYCLES, FOR 7 CYCLES
     Route: 048
     Dates: start: 201810, end: 201906
  9. XELODA [Suspect]
     Active Substance: CAPECITABINE
     Dosage: FOR 3 CYCLES
     Route: 048
     Dates: start: 201906
  10. OXALIPLATIN [Concomitant]
     Active Substance: OXALIPLATIN
     Indication: Rectal adenocarcinoma
     Dosage: FOR 5 CYCLES
     Dates: start: 201703, end: 201706
  11. IRINOTECAN [Concomitant]
     Active Substance: IRINOTECAN
     Indication: Rectal adenocarcinoma
     Dosage: FOR THE FIRST CYCLE
     Dates: start: 20171014
  12. IRINOTECAN [Concomitant]
     Active Substance: IRINOTECAN
     Dosage: FOR THE SECOND CYCLE
     Dates: start: 20171122
  13. IRINOTECAN [Concomitant]
     Active Substance: IRINOTECAN
     Dosage: FOR 7 CYCLES
     Dates: start: 201802, end: 201810
  14. IRINOTECAN [Concomitant]
     Active Substance: IRINOTECAN
     Dosage: FOR 7 CYCLES
     Dates: start: 201810, end: 201906
  15. IRINOTECAN [Concomitant]
     Active Substance: IRINOTECAN
     Dosage: FOR 3 CYCLES
     Dates: start: 201906, end: 201909
  16. LEUCOVORIN CALCIUM [Concomitant]
     Active Substance: LEUCOVORIN CALCIUM
     Indication: Rectal adenocarcinoma
     Dosage: FOR THE FIRST CYCLE
     Dates: start: 20171014
  17. LEUCOVORIN CALCIUM [Concomitant]
     Active Substance: LEUCOVORIN CALCIUM
     Dosage: FOR THE SECOND CYCLE
     Dates: start: 20171122
  18. FLUOROURACIL [Concomitant]
     Active Substance: FLUOROURACIL
     Indication: Rectal adenocarcinoma
     Dosage: FOR THE FIRST CYCLE
     Dates: start: 20171014
  19. FLUOROURACIL [Concomitant]
     Active Substance: FLUOROURACIL
     Dosage: FOR THE SECOND CYCLE
     Dates: start: 20171122

REACTIONS (1)
  - Anastomotic leak [Unknown]
